FAERS Safety Report 5854784-6 (Version None)
Quarter: 2008Q3

REPORT INFORMATION
  Report Type: 
  Country: None (occurrence: None)
  Receive Date: 20080822
  Receipt Date: 20080811
  Transmission Date: 20090109
  Serious: Yes (Other)
  Sender: FDA-Public Use
  Company Number: CN-PFIZER INC-2008068303

PATIENT
  Age: 72 Year
  Sex: Female

DRUGS (2)
  1. CEFOPERAZONE SODIUM [Suspect]
     Indication: INFECTION
  2. CLINDAMYCIN HYDROCHLORIDE [Suspect]
     Indication: INFECTION

REACTIONS (1)
  - HENOCH-SCHONLEIN PURPURA [None]
